FAERS Safety Report 6340853-3 (Version None)
Quarter: 2009Q3

REPORT INFORMATION
  Report Type: 
  Country: None (occurrence: None)
  Receive Date: 20090904
  Receipt Date: 20090824
  Transmission Date: 20100115
  Serious: Yes (Other)
  Sender: FDA-Public Use
  Company Number: US-PFIZER INC-2009239004

PATIENT

DRUGS (1)
  1. SOMAVERT [Suspect]

REACTIONS (1)
  - PITUITARY TUMOUR RECURRENT [None]
